FAERS Safety Report 26179954 (Version 1)
Quarter: 2025Q4

REPORT INFORMATION
  Report Type: Spontaneous
  Country: US (occurrence: None)
  Receive Date: 20251219
  Receipt Date: 20251219
  Transmission Date: 20260117
  Serious: Yes (Disabling)
  Sender: FDA-CTU
  Company Number: None

PATIENT
  Age: 29 Year
  Sex: Female
  Weight: 99 kg

DRUGS (7)
  1. COBENFY [Suspect]
     Active Substance: TROSPIUM CHLORIDE\XANOMELINE
     Indication: Schizophrenia
     Dates: start: 20251216, end: 20251217
  2. 2 propranolol 60 MG 24 hr capsule [Concomitant]
  3. SPIRONOLACTONE [Concomitant]
     Active Substance: SPIRONOLACTONE
  4. lamoTRIgine 200 MG tablet [Concomitant]
  5. FLUoxetine 20 MG capsule [Concomitant]
  6. FLUOXETINE [Concomitant]
     Active Substance: FLUOXETINE HYDROCHLORIDE
  7. 3 traZODone 100 MG [Concomitant]

REACTIONS (7)
  - Vision blurred [None]
  - Confusional state [None]
  - Hot flush [None]
  - Somnolence [None]
  - Tinnitus [None]
  - Gait disturbance [None]
  - Dissociation [None]

NARRATIVE: CASE EVENT DATE: 20251217
